FAERS Safety Report 9203071 (Version 3)
Quarter: 2013Q3

REPORT INFORMATION
  Report Type: Spontaneous
  Country: FR (occurrence: FR)
  Receive Date: 20130402
  Receipt Date: 20130924
  Transmission Date: 20140515
  Serious: Yes (Hospitalization)
  Sender: FDA-Public Use
  Company Number: FR-MERCK-1303FRA012395

PATIENT
  Age: 48 Year
  Sex: Male
  Weight: 80 kg

DRUGS (9)
  1. VICTRELIS [Suspect]
     Indication: HEPATITIS C
     Dosage: 800 MG, TID
     Route: 048
     Dates: start: 20110317, end: 20120223
  2. REBETOL [Suspect]
     Indication: HEPATITIS C
     Dosage: 800 MG, BID
     Route: 048
     Dates: start: 20110317, end: 20120223
  3. VIRAFERONPEG [Suspect]
     Indication: HEPATITIS C
     Dosage: 1.5 MICROGRAM PER KILOGRAM, QW
     Route: 058
     Dates: start: 20110317, end: 20120223
  4. IMOVANE [Concomitant]
     Indication: INSOMNIA
     Dosage: 7.5 MG, QD
     Dates: start: 20111118
  5. CITALOPRAM [Concomitant]
     Indication: MAJOR DEPRESSION
     Dosage: 20 MG, QD
     Dates: start: 2008, end: 20120315
  6. ZOPICLONE [Concomitant]
     Indication: INSOMNIA
     Dosage: 7.5 MG, QD
     Dates: start: 2008, end: 20120315
  7. SERESTA [Concomitant]
     Indication: ANXIETY
     Dosage: 10 MG, QD
     Dates: start: 2009, end: 20120315
  8. SEROPRAM [Concomitant]
     Indication: PRODUCT USED FOR UNKNOWN INDICATION
  9. STABLON [Concomitant]
     Indication: PRODUCT USED FOR UNKNOWN INDICATION
     Dosage: UNK

REACTIONS (3)
  - Hyperhidrosis [Recovered/Resolved]
  - Malaise [Recovered/Resolved]
  - Chills [Recovered/Resolved]
